FAERS Safety Report 24848596 (Version 1)
Quarter: 2025Q1

REPORT INFORMATION
  Report Type: Report from Study
  Country: BR (occurrence: BR)
  Receive Date: 20250116
  Receipt Date: 20250116
  Transmission Date: 20250408
  Serious: Yes (Other)
  Sender: SANDOZ
  Company Number: BR-SANDOZ-SDZ2025BR001563

PATIENT
  Sex: Male

DRUGS (1)
  1. HYRIMOZ [Suspect]
     Active Substance: ADALIMUMAB-ADAZ
     Indication: Product used for unknown indication
     Dosage: QW (ONCE A WEEK) BEFORE USED EVERY 15 DAYS
     Route: 065

REACTIONS (4)
  - Faecal calprotectin increased [Unknown]
  - Diarrhoea [Unknown]
  - Arthralgia [Unknown]
  - Abdominal pain [Unknown]
